FAERS Safety Report 10206731 (Version 1)
Quarter: 2014Q2

REPORT INFORMATION
  Report Type: Spontaneous
  Country: US (occurrence: None)
  Receive Date: 20140527
  Receipt Date: 20140527
  Transmission Date: 20141212
  Serious: No
  Sender: FDA-Public Use
  Company Number: None

PATIENT
  Age: 50 Year
  Sex: Female
  Weight: 133.81 kg

DRUGS (1)
  1. METRONIDAZOLE GEL, USP 1% SANDOZ [Suspect]
     Indication: ROSACEA
     Route: 061

REACTIONS (4)
  - Product substitution issue [None]
  - Drug ineffective [None]
  - Product quality issue [None]
  - Dermatitis [None]
